FAERS Safety Report 16414493 (Version 1)
Quarter: 2019Q2

REPORT INFORMATION
  Report Type: Spontaneous
  Country: US (occurrence: US)
  Receive Date: 20190503
  Receipt Date: 20190503
  Transmission Date: 20190711
  Serious: Yes (Other)
  Sender: FDA-Public Use
  Company Number: None

PATIENT
  Age: 67 Year
  Sex: Female
  Weight: 45.81 kg

DRUGS (6)
  1. ECOTRIN [Concomitant]
     Active Substance: ASPIRIN
  2. RESTASIS [Concomitant]
     Active Substance: CYCLOSPORINE
  3. ATOVAQUONE-PROGUANIL, GENERAL FOR MALARONE. [Concomitant]
  4. TRANSDERM SCOP [Suspect]
     Active Substance: SCOPOLAMINE
     Indication: MOTION SICKNESS
     Dosage: ?          QUANTITY:1.5 MG MILLIGRAM(S);OTHER FREQUENCY:EVERY 3 DAYS;?
     Route: 062
     Dates: start: 20190223, end: 20190223
  5. DIPHCNOXYLATE-ATROP GENERIC FOR LOMOTIL, [Concomitant]
  6. AZITHROMYCIN, GENERIC FOR ZITHROMAX [Concomitant]

REACTIONS (4)
  - Amnesia [None]
  - Dizziness [None]
  - Balance disorder [None]
  - Abnormal behaviour [None]

NARRATIVE: CASE EVENT DATE: 20190223
